FAERS Safety Report 13050592 (Version 3)
Quarter: 2020Q3

REPORT INFORMATION
  Report Type: Report from Study
  Country: ES (occurrence: ES)
  Receive Date: 20161221
  Receipt Date: 20170111
  Transmission Date: 20201104
  Serious: Yes (Life-Threatening, Hospitalization, Disabling)
  Sender: FDA-Public Use
  Company Number: ES-JNJFOC-20161208734

PATIENT
  Age: 67 Year
  Sex: Female
  Weight: 51.1 kg

DRUGS (7)
  1. IBRUTINIB [Suspect]
     Active Substance: IBRUTINIB
     Indication: RENAL CELL CARCINOMA
     Route: 048
     Dates: start: 20160926, end: 20161204
  2. EVEROLIMUS. [Suspect]
     Active Substance: EVEROLIMUS
     Indication: RENAL CELL CARCINOMA
     Route: 048
     Dates: start: 20160926, end: 20161204
  3. PANTOPRAZOL [Concomitant]
     Active Substance: PANTOPRAZOLE SODIUM
     Indication: PROPHYLAXIS AGAINST GASTROINTESTINAL ULCER
     Route: 048
     Dates: start: 20150507
  4. LEVOTHYROXINE. [Concomitant]
     Active Substance: LEVOTHYROXINE
     Indication: HYPOTHYROIDISM
     Route: 048
     Dates: start: 20151216
  5. IBRUTINIB [Suspect]
     Active Substance: IBRUTINIB
     Route: 048
  6. ALPRAZOLAM. [Concomitant]
     Active Substance: ALPRAZOLAM
     Indication: ANXIETY
     Route: 048
     Dates: start: 20150319
  7. CANDESARTAN. [Concomitant]
     Active Substance: CANDESARTAN
     Indication: HYPERTENSION
     Route: 048
     Dates: start: 20151107, end: 20161201

REACTIONS (5)
  - Interstitial lung disease [Not Recovered/Not Resolved]
  - Diarrhoea [Recovered/Resolved]
  - Respiratory tract infection [Recovered/Resolved]
  - Amyloidosis [Not Recovered/Not Resolved]
  - Renal failure [Not Recovered/Not Resolved]

NARRATIVE: CASE EVENT DATE: 20161128
